FAERS Safety Report 20909097 (Version 2)
Quarter: 2022Q3

REPORT INFORMATION
  Report Type: Report from Study
  Country: CA (occurrence: CA)
  Receive Date: 20220603
  Receipt Date: 20220714
  Transmission Date: 20221027
  Serious: Yes (Other)
  Sender: FDA-Public Use
  Company Number: CA-JNJFOC-20210305287

PATIENT
  Age: 10 Year
  Sex: Female
  Weight: 44.946 kg

DRUGS (5)
  1. REMICADE [Suspect]
     Active Substance: INFLIXIMAB
     Indication: Crohn^s disease
     Route: 042
     Dates: start: 20201223
  2. REMICADE [Suspect]
     Active Substance: INFLIXIMAB
     Dosage: DECREASED DOSE
     Route: 042
  3. REMICADE [Suspect]
     Active Substance: INFLIXIMAB
     Dosage: DOSE INCREASED
     Route: 042
  4. REMICADE [Suspect]
     Active Substance: INFLIXIMAB
     Route: 042
  5. REMICADE [Suspect]
     Active Substance: INFLIXIMAB
     Route: 042

REACTIONS (7)
  - Large intestinal ulcer haemorrhage [Unknown]
  - Large intestinal stenosis [Unknown]
  - Drug level increased [Unknown]
  - Gastrointestinal inflammation [Unknown]
  - Drug level decreased [Unknown]
  - Abdominal pain [Recovering/Resolving]
  - Off label use [Unknown]

NARRATIVE: CASE EVENT DATE: 20201223
